FAERS Safety Report 19825834 (Version 2)
Quarter: 2021Q3

REPORT INFORMATION
  Report Type: Report from Study
  Country: None (occurrence: AU)
  Receive Date: 20210914
  Receipt Date: 20210916
  Transmission Date: 20211014
  Serious: Yes (Hospitalization, Other)
  Sender: FDA-Public Use
  Company Number: AU-ABBVIE-21K-008-4075140-00

PATIENT
  Sex: Male

DRUGS (2)
  1. DUODOPA [Suspect]
     Active Substance: CARBIDOPA\LEVODOPA
     Route: 050
  2. DUODOPA [Suspect]
     Active Substance: CARBIDOPA\LEVODOPA
     Indication: PARKINSON^S DISEASE
     Dosage: DOSE DECREASED
     Route: 050
     Dates: start: 20161208

REACTIONS (5)
  - Device issue [Not Recovered/Not Resolved]
  - Device use issue [Not Recovered/Not Resolved]
  - Hospitalisation [Unknown]
  - Dyskinesia [Unknown]
  - Small intestinal obstruction [Unknown]
